FAERS Safety Report 24418512 (Version 2)
Quarter: 2024Q4

REPORT INFORMATION
  Report Type: Spontaneous
  Country: US (occurrence: US)
  Receive Date: 20241009
  Receipt Date: 20241226
  Transmission Date: 20250115
  Serious: No
  Sender: SANOFI AVENTIS
  Company Number: US-SA-2024SA288095

PATIENT
  Age: 1 Year
  Sex: Male

DRUGS (1)
  1. DUPIXENT [Suspect]
     Active Substance: DUPILUMAB
     Indication: Eczema
     Dosage: 200 MG, Q4W
     Route: 058
     Dates: start: 20240124

REACTIONS (3)
  - Ear infection [Recovered/Resolved]
  - Secretion discharge [Unknown]
  - Erythema [Unknown]

NARRATIVE: CASE EVENT DATE: 20240901
